FAERS Safety Report 10388777 (Version 1)
Quarter: 2014Q3

REPORT INFORMATION
  Report Type: Not Available
  Country: US (occurrence: US)
  Receive Date: 20140816
  Receipt Date: 20140816
  Transmission Date: 20150326
  Serious: No
  Sender: FDA-Public Use
  Company Number: US-LUPIN PHARMACEUTICALS INC.-2014-01267

PATIENT
  Sex: Male

DRUGS (1)
  1. DULOXETINE DELAYED-RELEASE 30 MG CAPSULES USP [Suspect]
     Active Substance: DULOXETINE
     Indication: PRODUCT USED FOR UNKNOWN INDICATION
     Route: 065

REACTIONS (4)
  - Product substitution issue [Unknown]
  - Headache [Recovered/Resolved]
  - Abnormal dreams [Recovered/Resolved]
  - Insomnia [Recovered/Resolved]
